FAERS Safety Report 9912599 (Version 2)
Quarter: 2014Q2

REPORT INFORMATION
  Report Type: Spontaneous
  Country: US (occurrence: None)
  Receive Date: 20140212
  Receipt Date: 20140609
  Transmission Date: 20141212
  Serious: Yes (Other)
  Sender: FDA-Public Use
  Company Number: 2014-US-001393

PATIENT
  Age: 33 Year
  Sex: Female

DRUGS (6)
  1. XYREM [Suspect]
     Indication: NARCOLEPSY
     Route: 048
     Dates: start: 201007
  2. XYREM [Suspect]
     Indication: CATAPLEXY
     Route: 048
     Dates: start: 201007
  3. PROPRANOLOL (PROPRANOLOL HYDROCHLORIDE) [Concomitant]
  4. XANAX (ALPRAZOLAM) [Concomitant]
  5. ADDERALL (AMFETAMINE ASPARTATE, AMFETAMINE SULFATE, DEXAMFETAMINE SACCHARATE, DEXAMFETAMINE SULFATE) [Concomitant]
  6. PSYCHIATRIC MEDICATIONS [Concomitant]

REACTIONS (5)
  - Hypotension [None]
  - Abnormal behaviour [None]
  - Confusional state [None]
  - Dystonia [None]
  - Malaise [None]
